FAERS Safety Report 7761669-7 (Version None)
Quarter: 2011Q3

REPORT INFORMATION
  Report Type: 
  Country: None (occurrence: None)
  Receive Date: 20110920
  Receipt Date: 20110907
  Transmission Date: 20111222
  Serious: Yes (Other)
  Sender: FDA-Public Use
  Company Number: PHHY2011CH75343

PATIENT
  Age: 34 Year
  Sex: Male

DRUGS (2)
  1. CERTICAN [Suspect]
     Indication: IMMUNOSUPPRESSION
     Dosage: UNK UKN, UNK
  2. ALLOPURINOL [Concomitant]
     Dosage: 100 MG, DAILY

REACTIONS (3)
  - FOCAL SEGMENTAL GLOMERULOSCLEROSIS [None]
  - RENAL FAILURE [None]
  - PROTEINURIA [None]
